FAERS Safety Report 9091043 (Version 1)
Quarter: 2013Q1

REPORT INFORMATION
  Report Type: Report from Study
  Country: US (occurrence: US)
  Receive Date: 20130201
  Receipt Date: 20130201
  Transmission Date: 20140127
  Serious: No
  Sender: FDA-Public Use
  Company Number: US-ABBOTT-12P-163-1019065-00

PATIENT
  Age: 40 Year
  Sex: Female

DRUGS (8)
  1. HUMIRA [Suspect]
     Indication: ANKYLOSING SPONDYLITIS
     Route: 058
     Dates: start: 20120703
  2. HUMIRA [Suspect]
     Route: 058
     Dates: start: 2012
  3. PLAQUENIL [Concomitant]
     Indication: PRODUCT USED FOR UNKNOWN INDICATION
     Dosage: 2 TABS DAILY
  4. PREDNISONE [Concomitant]
     Indication: PRODUCT USED FOR UNKNOWN INDICATION
     Dosage: 7.5 MG DAILY
  5. AMITRIPTYLINE [Concomitant]
     Indication: DEPRESSION
     Dosage: 12.5 MG DAILY
  6. ZOLOFT [Concomitant]
     Indication: DEPRESSION
  7. TOPAMAX [Concomitant]
     Indication: MIGRAINE
  8. MIRAPEX [Concomitant]
     Indication: RESTLESS LEGS SYNDROME

REACTIONS (3)
  - Drug ineffective [Not Recovered/Not Resolved]
  - Device malfunction [Not Recovered/Not Resolved]
  - Incorrect dose administered [Not Recovered/Not Resolved]
